FAERS Safety Report 10238502 (Version 1)
Quarter: 2014Q2

REPORT INFORMATION
  Report Type: Spontaneous
  Country: US (occurrence: US)
  Receive Date: 20140616
  Receipt Date: 20140616
  Transmission Date: 20141212
  Serious: No
  Sender: FDA-Public Use
  Company Number: US-PFIZER INC-2014160321

PATIENT
  Age: 40 Year
  Sex: Male

DRUGS (9)
  1. LYRICA [Suspect]
     Dosage: 50 MG, 2X/DAY
     Route: 048
  2. IBUPROFEN [Concomitant]
     Dosage: UNK
  3. PROTONIX [Concomitant]
     Dosage: 40 MG, 1X/DAY
     Route: 048
  4. NITROSTAT [Concomitant]
     Dosage: UNK
  5. NEURONTIN [Concomitant]
     Dosage: UNK
  6. AZULFIDINE [Concomitant]
     Dosage: UNK
  7. TRAMADOL [Concomitant]
     Dosage: UNK
  8. CYMBALTA [Concomitant]
     Dosage: UNK
  9. SEROQUEL [Concomitant]
     Dosage: UNK

REACTIONS (4)
  - Drug hypersensitivity [Unknown]
  - Drug prescribing error [Unknown]
  - Movement disorder [Unknown]
  - Somnolence [Unknown]
